FAERS Safety Report 8486069-6 (Version None)
Quarter: 2012Q3

REPORT INFORMATION
  Report Type: 
  Country: None (occurrence: None)
  Receive Date: 20120703
  Receipt Date: 20120622
  Transmission Date: 20120928
  Serious: Yes (Other)
  Sender: FDA-Public Use
  Company Number: JP-VERTEX PHARMACEUTICALS INC.-AE-2012-009502

PATIENT
  Age: 41 Year
  Sex: Female

DRUGS (10)
  1. RIBAVIRIN [Concomitant]
     Indication: HEPATITIS C
     Route: 048
     Dates: start: 20120321, end: 20120522
  2. TSUMURA JUZETAIHOTO EXTRACT GRANULES FOR ETHICAL USE [Concomitant]
     Route: 048
  3. MUCOSTA [Concomitant]
     Route: 048
     Dates: start: 20120321
  4. RIBAVIRIN [Concomitant]
     Route: 048
     Dates: start: 20120523, end: 20120612
  5. PEGINTERFERON ALFA-2B [Concomitant]
     Indication: HEPATITIS C
     Route: 058
     Dates: start: 20120321
  6. TELAVIC (TELAPREVIR) [Suspect]
     Indication: HEPATITIS C
     Route: 048
     Dates: start: 20120321, end: 20120508
  7. TELAVIC (TELAPREVIR) [Suspect]
     Route: 048
     Dates: start: 20120509, end: 20120612
  8. LOXOPROFEN SODIUM HYDRATE [Concomitant]
     Route: 048
     Dates: start: 20120321
  9. ALLEGRA OD [Concomitant]
     Route: 048
     Dates: start: 20120418
  10. RIBAVIRIN [Concomitant]
     Route: 048
     Dates: start: 20120613

REACTIONS (4)
  - WHITE BLOOD CELL COUNT DECREASED [None]
  - HAEMOGLOBIN DECREASED [None]
  - PLATELET COUNT DECREASED [None]
  - BLOOD URIC ACID INCREASED [None]
